FAERS Safety Report 14770816 (Version 1)
Quarter: 2018Q2

REPORT INFORMATION
  Report Type: Spontaneous
  Country: US (occurrence: US)
  Receive Date: 20180417
  Receipt Date: 20180417
  Transmission Date: 20180711
  Serious: No
  Sender: FDA-Public Use
  Company Number: US-ABBVIE-17P-163-2188294-00

PATIENT
  Age: 9 Year

DRUGS (1)
  1. LUPRON DEPOT-PED [Suspect]
     Active Substance: LEUPROLIDE ACETATE
     Indication: PRODUCT USED FOR UNKNOWN INDICATION
     Route: 030

REACTIONS (3)
  - Overdose [Not Recovered/Not Resolved]
  - Drug administration error [Not Recovered/Not Resolved]
  - Drug dispensing error [Not Recovered/Not Resolved]
